FAERS Safety Report 5588453-7 (Version None)
Quarter: 2007Q4

REPORT INFORMATION
  Report Type: 
  Country: None (occurrence: None)
  Receive Date: 20071211
  Receipt Date: 20071015
  Transmission Date: 20080405
  Serious: No
  Sender: FDA-Public Use
  Company Number: 002#2#2007-00251

PATIENT
  Sex: Male

DRUGS (3)
  1. NEUPRO [Suspect]
     Indication: DRUG USE FOR UNKNOWN INDICATION
     Dosage: 4MG/24H,1 IN 1 D,TRANSDERMAL
     Route: 062
     Dates: start: 20070901
  2. AUGMENTIN '125' [Suspect]
     Indication: SINUS DISORDER
     Dosage: 875MG,2 IN 1 D
     Dates: start: 20071006
  3. AUGMENTIN '125' [Suspect]
     Indication: TOOTH EXTRACTION
     Dosage: 875MG,2 IN 1 D
     Dates: start: 20071006

REACTIONS (4)
  - BALANCE DISORDER [None]
  - DIZZINESS [None]
  - DRUG INTERACTION [None]
  - NAUSEA [None]
